FAERS Safety Report 14219632 (Version 4)
Quarter: 2018Q2

REPORT INFORMATION
  Report Type: Spontaneous
  Country: US (occurrence: US)
  Receive Date: 20171123
  Receipt Date: 20180627
  Transmission Date: 20180711
  Serious: Yes (Hospitalization)
  Sender: FDA-Public Use
  Company Number: US-PFIZER INC-2017505127

PATIENT
  Age: 61 Year
  Sex: Female
  Weight: 65 kg

DRUGS (5)
  1. CYCLOPHOSPHAMIDE. [Concomitant]
     Active Substance: CYCLOPHOSPHAMIDE
  2. FEMARA [Concomitant]
     Active Substance: LETROZOLE
     Indication: HORMONE THERAPY
     Dosage: UNK
     Dates: start: 20121212
  3. TAXOTERE [Concomitant]
     Active Substance: DOCETAXEL
  4. NEOSAR [Concomitant]
     Active Substance: CYCLOPHOSPHAMIDE
     Indication: CHEMOTHERAPY
     Dosage: UNK
  5. DOCETAXEL. [Suspect]
     Active Substance: DOCETAXEL
     Indication: BREAST CANCER FEMALE
     Dosage: 130 MG, CYCLIC EVERY 3 WEEKS, SIX CYCLES
     Dates: start: 20120426, end: 20120816

REACTIONS (6)
  - Hair texture abnormal [Unknown]
  - Hair colour changes [Unknown]
  - Alopecia [Not Recovered/Not Resolved]
  - Madarosis [Unknown]
  - Febrile neutropenia [Unknown]
  - Hair disorder [Unknown]

NARRATIVE: CASE EVENT DATE: 201302
